FAERS Safety Report 15104635 (Version 1)
Quarter: 2018Q3

REPORT INFORMATION
  Report Type: Spontaneous
  Country: DE (occurrence: DE)
  Receive Date: 20180703
  Receipt Date: 20180703
  Transmission Date: 20181010
  Serious: Yes (Hospitalization)
  Sender: FDA-Public Use
  Company Number: PHHY2016DE186057

PATIENT
  Age: 84 Year
  Sex: Male
  Weight: 62.3 kg

DRUGS (32)
  1. AVASTIN [Suspect]
     Active Substance: BEVACIZUMAB
     Indication: COLORECTAL CANCER
     Dosage: 325 MG, QW2
     Route: 042
     Dates: start: 20160512
  2. AVASTIN [Suspect]
     Active Substance: BEVACIZUMAB
     Dosage: UNK
     Route: 042
  3. CLEXANE [Concomitant]
     Active Substance: ENOXAPARIN SODIUM
     Indication: THROMBOSIS PROPHYLAXIS
     Dosage: 40 MG, QD
     Route: 058
     Dates: start: 20160512
  4. CLEXANE [Concomitant]
     Active Substance: ENOXAPARIN SODIUM
     Dosage: UNK
     Route: 065
  5. 5?FLUOROURACIL [Concomitant]
     Active Substance: FLUOROURACIL
     Dosage: UNK
     Route: 065
  6. DIFLUCAN [Concomitant]
     Active Substance: FLUCONAZOLE
     Dosage: UNK
     Route: 065
  7. IRINOTECAN [Suspect]
     Active Substance: IRINOTECAN
     Dosage: 35 MG, UNK
     Route: 042
  8. DIFLUCAN [Concomitant]
     Active Substance: FLUCONAZOLE
     Indication: PRODUCT USED FOR UNKNOWN INDICATION
     Dosage: 100 MG, QD
     Route: 048
     Dates: start: 20170130, end: 20170219
  9. DEXAMETHASONE. [Concomitant]
     Active Substance: DEXAMETHASONE
     Indication: PRODUCT USED FOR UNKNOWN INDICATION
     Dosage: 4 MG, QD
     Route: 048
     Dates: start: 20161215
  10. FOLINIC ACID [Concomitant]
     Active Substance: LEUCOVORIN
     Dosage: 670 MG, QW2
     Route: 041
     Dates: start: 20160610, end: 20170120
  11. AVASTIN [Suspect]
     Active Substance: BEVACIZUMAB
     Dosage: 300 MG, QW2
     Route: 042
     Dates: start: 20160610
  12. 5?FLUOROURACIL [Concomitant]
     Active Substance: FLUOROURACIL
     Dosage: 4050 MG, QW2
     Route: 041
     Dates: start: 20160610, end: 20160611
  13. FOLINIC ACID [Concomitant]
     Active Substance: LEUCOVORIN
     Indication: PRODUCT USED FOR UNKNOWN INDICATION
     Dosage: 700 MG, QW2
     Route: 041
     Dates: start: 20160512, end: 20170119
  14. IRINOTECAN [Suspect]
     Active Substance: IRINOTECAN
     Indication: OFF LABEL USE
     Dosage: 300 MG, QW2
     Route: 042
     Dates: start: 20160610
  15. IRINOTECAN [Suspect]
     Active Substance: IRINOTECAN
     Dosage: 225 MG, QW2
     Route: 042
     Dates: start: 20160628
  16. 5?FLUOROURACIL [Concomitant]
     Active Substance: FLUOROURACIL
     Indication: COLORECTAL CANCER
     Dosage: 700 MG, QW2
     Route: 040
     Dates: start: 20160512
  17. 5?FLUOROURACIL [Concomitant]
     Active Substance: FLUOROURACIL
     Dosage: 670 MG, QW2
     Route: 040
     Dates: start: 20160610
  18. SPASMEX [Concomitant]
     Dosage: UNK
     Route: 065
  19. BRISERIN [Concomitant]
     Indication: HYPERTENSION
     Dosage: 0.1 MG, QD
     Route: 048
  20. DEXAMETHASONE. [Concomitant]
     Active Substance: DEXAMETHASONE
     Dosage: UNK
     Route: 065
  21. IRINOTECAN [Suspect]
     Active Substance: IRINOTECAN
     Indication: COLORECTAL CANCER
     Dosage: 315 MG, QW2
     Route: 042
     Dates: start: 20160512
  22. 5?FLUOROURACIL [Concomitant]
     Active Substance: FLUOROURACIL
     Dosage: 4200 MG, QW2
     Route: 041
     Dates: start: 20160512, end: 20160513
  23. SPASMEX [Concomitant]
     Indication: PRODUCT USED FOR UNKNOWN INDICATION
     Dosage: 30 MG, QD
     Route: 048
  24. SPASMEX [Concomitant]
     Dosage: 15 MG, QD
     Route: 048
  25. BRISERIN [Concomitant]
     Dosage: UNK
     Route: 065
  26. FOLINIC ACID [Suspect]
     Active Substance: LEUCOVORIN
     Indication: PRODUCT USED FOR UNKNOWN INDICATION
     Dosage: 670 MG, UNK
     Route: 041
     Dates: start: 20160610
  27. FOLINIC ACID [Suspect]
     Active Substance: LEUCOVORIN
     Dosage: 670 MG, UNK
     Route: 041
     Dates: start: 20170120
  28. 5?FU [Suspect]
     Active Substance: FLUOROURACIL
     Indication: PRODUCT USED FOR UNKNOWN INDICATION
     Dosage: UNK
     Route: 065
  29. FOLINIC ACID [Suspect]
     Active Substance: LEUCOVORIN
     Dosage: UNK
     Route: 065
  30. DEXAMETHASONE. [Suspect]
     Active Substance: DEXAMETHASONE
     Indication: PRODUCT USED FOR UNKNOWN INDICATION
     Dosage: UNK
     Route: 065
  31. IRINOTECAN [Suspect]
     Active Substance: IRINOTECAN
     Dosage: 220 MG, QW2
     Route: 042
     Dates: start: 20170119
  32. AVASTIN [Suspect]
     Active Substance: BEVACIZUMAB
     Dosage: 290 MG, QW2
     Route: 042
     Dates: start: 20170119

REACTIONS (3)
  - Mucosal inflammation [Recovered/Resolved]
  - Mucosal inflammation [Recovered/Resolved]
  - Off label use [Unknown]

NARRATIVE: CASE EVENT DATE: 20160617
